FAERS Safety Report 8484030-9 (Version None)
Quarter: 2012Q2

REPORT INFORMATION
  Report Type: 
  Country: None (occurrence: None)
  Receive Date: 20120402
  Receipt Date: 20110919
  Transmission Date: 20120825
  Serious: Yes (Other)
  Sender: FDA-Public Use
  Company Number: A-NJ2011-52040

PATIENT
  Age: 72 Year
  Sex: Female

DRUGS (4)
  1. VENTAVIS [Suspect]
     Indication: PULMONARY ARTERIAL HYPERTENSION
     Dosage: 5 ?G, 6 X DAY, RESPIRATORY
     Route: 055
     Dates: start: 20110214
  2. TRACLEER [Suspect]
     Indication: PULMONARY ARTERIAL HYPERTENSION
     Dosage: 125 MG, BID, ORAL
     Route: 048
     Dates: start: 20100101
  3. OXYGEN (OXYGEN) [Concomitant]
  4. REVATIO [Concomitant]

REACTIONS (3)
  - HEADACHE [None]
  - BRONCHOSPASM [None]
  - COUGH [None]
